FAERS Safety Report 6061933-6 (Version None)
Quarter: 2009Q1

REPORT INFORMATION
  Report Type: 
  Country: None (occurrence: None)
  Receive Date: 20090202
  Receipt Date: 20090129
  Transmission Date: 20090719
  Serious: Yes (Life-Threatening, Other)
  Sender: FDA-Public Use
  Company Number: PHHY2009BR03383

PATIENT
  Sex: Female
  Weight: 56 kg

DRUGS (2)
  1. CATAFLAM [Suspect]
     Indication: TORTICOLLIS
     Dosage: 50 MG
     Route: 048
     Dates: start: 20020101
  2. ANTIDEPRESSANTS [Concomitant]
     Dosage: UNK
     Dates: start: 20030101

REACTIONS (7)
  - DENGUE FEVER [None]
  - FEELING ABNORMAL [None]
  - OCULAR HYPERAEMIA [None]
  - PAIN [None]
  - PRURITUS [None]
  - SWELLING [None]
  - URTICARIA [None]
